FAERS Safety Report 6578015-7 (Version None)
Quarter: 2010Q1

REPORT INFORMATION
  Report Type: 
  Country: None (occurrence: None)
  Receive Date: 20100211
  Receipt Date: 20091203
  Transmission Date: 20100710
  Serious: No
  Sender: FDA-Public Use
  Company Number: US-BRISTOL-MYERS SQUIBB COMPANY-14886444

PATIENT

DRUGS (1)
  1. IXEMPRA KIT [Suspect]
     Route: 042

REACTIONS (1)
  - ACCIDENTAL EXPOSURE [None]
